FAERS Safety Report 14333060 (Version 3)
Quarter: 2018Q1

REPORT INFORMATION
  Report Type: Spontaneous
  Country: IN (occurrence: IN)
  Receive Date: 20171228
  Receipt Date: 20180104
  Transmission Date: 20180509
  Serious: Yes (Congenital Anomaly, Other)
  Sender: FDA-Public Use
  Company Number: IN-PFIZER INC-2017540930

PATIENT

DRUGS (4)
  1. OLANZAPINE. [Suspect]
     Active Substance: OLANZAPINE
     Indication: BIPOLAR DISORDER
     Dosage: 5 MG, NIGHT, SINCE 4 YEARS TILL THIRD TRIMESTER OF PREGNANCY
  2. SERTRALINE HCL [Suspect]
     Active Substance: SERTRALINE HYDROCHLORIDE
     Dosage: 150 MG, 1X/DAY
     Route: 064
  3. SERTRALINE HCL [Suspect]
     Active Substance: SERTRALINE HYDROCHLORIDE
     Indication: BIPOLAR DISORDER
     Dosage: 50 MG, SINCE 4 YEARS TILL THIRD TRIMESTER OF PREGNANCY
  4. OLANZAPINE. [Suspect]
     Active Substance: OLANZAPINE
     Dosage: 2.5 MG, 1X/DAY (NIGHT)
     Route: 064

REACTIONS (21)
  - Neck deformity [Unknown]
  - Congenital arterial malformation [Unknown]
  - Polyhydramnios [Unknown]
  - Limb reduction defect [Unknown]
  - Haemorrhage [Unknown]
  - Cyanosis [Unknown]
  - Heart rate decreased [Unknown]
  - Persistent foetal circulation [Unknown]
  - Maternal exposure during pregnancy [Unknown]
  - Premature baby [Unknown]
  - Micrognathia [Unknown]
  - Neonatal asphyxia [Unknown]
  - Dyspnoea [Unknown]
  - Teratogenicity [Unknown]
  - Limb deformity [Unknown]
  - Talipes [Unknown]
  - Congenital choroid plexus cyst [Unknown]
  - Oedema [Unknown]
  - Congenital joint malformation [Unknown]
  - Areflexia [Unknown]
  - Motor dysfunction [Unknown]
